FAERS Safety Report 10354506 (Version 3)
Quarter: 2015Q2

REPORT INFORMATION
  Report Type: Spontaneous
  Country: US (occurrence: US)
  Receive Date: 20140731
  Receipt Date: 20150504
  Transmission Date: 20150821
  Serious: Yes (Other)
  Sender: FDA-Public Use
  Company Number: US-BAYER-2014-112490

PATIENT
  Age: 35 Year
  Sex: Female
  Weight: 73.5 kg

DRUGS (1)
  1. MIRENA [Suspect]
     Active Substance: LEVONORGESTREL
     Dosage: 20 MCG/24HR, CONT
     Route: 015
     Dates: start: 20140620, end: 20140630

REACTIONS (3)
  - Pregnancy with contraceptive device [None]
  - Medication error [None]
  - Abortion spontaneous [None]

NARRATIVE: CASE EVENT DATE: 20140620
